FAERS Safety Report 5782827-7 (Version None)
Quarter: 2008Q2

REPORT INFORMATION
  Report Type: 
  Country: None (occurrence: None)
  Receive Date: 20080619
  Receipt Date: 20080619
  Transmission Date: 20081010
  Serious: Yes (Disabling, Other)
  Sender: FDA-Public Use
  Company Number: None

PATIENT
  Sex: Female
  Weight: 67.1324 kg

DRUGS (2)
  1. DIGITEK MANUFACTURER ACTIVIS [Suspect]
     Indication: CARDIAC DISORDER
     Dosage: 250 MG ONCE A DAY ORAL
     Route: 048
     Dates: start: 20080303, end: 20080430
  2. LANOXIN [Suspect]
     Indication: CARDIAC DISORDER
     Dosage: 25 MG ONCE A DAY ORAL
     Route: 048
     Dates: start: 20080401, end: 20080415

REACTIONS (10)
  - ANXIETY [None]
  - CARDIAC DISORDER [None]
  - DIZZINESS [None]
  - DYSPNOEA [None]
  - FATIGUE [None]
  - HEART RATE IRREGULAR [None]
  - INFLUENZA LIKE ILLNESS [None]
  - NAUSEA [None]
  - OEDEMA PERIPHERAL [None]
  - PHARMACEUTICAL PRODUCT COMPLAINT [None]
